FAERS Safety Report 5150152-3 (Version None)
Quarter: 2006Q4

REPORT INFORMATION
  Report Type: 
  Country: None (occurrence: None)
  Receive Date: 20061108
  Receipt Date: 20061023
  Transmission Date: 20070319
  Serious: Yes (Hospitalization)
  Sender: FDA-Public Use
  Company Number: US-2006-026073

PATIENT
  Age: 62 Year
  Sex: Female
  Weight: 90.7 kg

DRUGS (20)
  1. BETASERON [Suspect]
     Indication: SECONDARY PROGRESSIVE MULTIPLE SCLEROSIS
     Dosage: 8 MIU, EVERY 2D, SUBCUTANEOUS
     Route: 058
     Dates: start: 20040403
  2. REQUIP (ROPINROLE HYDROCHLORIDE) [Concomitant]
  3. SYNTHROID [Concomitant]
  4. ESTRADIOL INJ [Concomitant]
  5. NEXIUM [Concomitant]
  6. COMTREX (DEXTROMETHRORPHAN HYDDROBROMIDE, PHENYLPROPANOLAMINE HYDROCHL [Concomitant]
  7. POTASSIUM (POTASSIUM) [Concomitant]
  8. LASIX [Concomitant]
  9. SINEMET [Concomitant]
  10. MULTIVITAMINS (RETINOL, PANTHENOL) [Concomitant]
  11. OMEGA 3  (FISH OIL) [Concomitant]
  12. MAGNESIUM (MAGNESIUM)\ [Concomitant]
  13. PROVIGIL [Concomitant]
  14. ACETYLSALICYLIC ACID SRT [Concomitant]
  15. NOVOLOG [Concomitant]
  16. CYMBALTA [Concomitant]
  17. MIRALAX [Concomitant]
  18. ESTRACE [Concomitant]
  19. CRESTOR [Concomitant]
  20. POTASSIUM CHLORIDE [Concomitant]

REACTIONS (9)
  - ANOREXIA [None]
  - BLOOD GLUCOSE INCREASED [None]
  - BLOOD PRESSURE INCREASED [None]
  - COLITIS ISCHAEMIC [None]
  - COLITIS ULCERATIVE [None]
  - CROHN'S DISEASE [None]
  - CYSTITIS [None]
  - INFLAMMATORY BOWEL DISEASE [None]
  - RECTAL HAEMORRHAGE [None]
